FAERS Safety Report 15664445 (Version 2)
Quarter: 2018Q4

REPORT INFORMATION
  Report Type: Spontaneous
  Country: US (occurrence: US)
  Receive Date: 20181128
  Receipt Date: 20181206
  Transmission Date: 20190205
  Serious: Yes (Hospitalization, Other)
  Sender: FDA-Public Use
  Company Number: US-GLAXOSMITHKLINE-US2018GSK211585

PATIENT
  Age: 74 Year
  Sex: Female

DRUGS (3)
  1. VENTOLIN [Suspect]
     Active Substance: ALBUTEROL SULFATE
     Indication: CHRONIC OBSTRUCTIVE PULMONARY DISEASE
  2. VENTOLIN [Suspect]
     Active Substance: ALBUTEROL SULFATE
     Indication: BRONCHOMALACIA
     Dosage: UNK
     Dates: start: 2016
  3. VENTOLIN [Suspect]
     Active Substance: ALBUTEROL SULFATE
     Indication: TRACHEOMALACIA

REACTIONS (6)
  - Product use in unapproved indication [Unknown]
  - Loss of consciousness [Unknown]
  - Movement disorder [Unknown]
  - Endotracheal intubation [Unknown]
  - Rehabilitation therapy [Unknown]
  - Drug ineffective [Unknown]

NARRATIVE: CASE EVENT DATE: 2018
